FAERS Safety Report 22378146 (Version 1)
Quarter: 2023Q2

REPORT INFORMATION
  Report Type: Spontaneous
  Country: CN (occurrence: CN)
  Receive Date: 20230529
  Receipt Date: 20230529
  Transmission Date: 20230722
  Serious: Yes (Other)
  Sender: FDA-Public Use
  Company Number: CN-002147023-NVSC2023CN122204

PATIENT

DRUGS (9)
  1. CARBAMAZEPINE [Suspect]
     Active Substance: CARBAMAZEPINE
     Indication: Epilepsy
     Dosage: 200 MG, UNKNOWN (30 TABLETS)
     Route: 048
  2. CARBAMAZEPINE [Suspect]
     Active Substance: CARBAMAZEPINE
     Dosage: 5 MG/KG, QD
     Route: 048
  3. CARBAMAZEPINE [Suspect]
     Active Substance: CARBAMAZEPINE
     Dosage: 10 MG/KG, QW
     Route: 048
  4. CARBAMAZEPINE [Suspect]
     Active Substance: CARBAMAZEPINE
     Dosage: 20 MG/KG, QD
     Route: 048
  5. VALPROATE SODIUM [Suspect]
     Active Substance: VALPROATE SODIUM
     Indication: Epilepsy
     Dosage: 0.2 G, TID (100 TABLETS)
     Route: 048
  6. TOPIRAMATE [Suspect]
     Active Substance: TOPIRAMATE
     Indication: Epilepsy
     Dosage: 25 MG, UNKNOWN (60 TABLETS)
     Route: 048
  7. TOPIRAMATE [Suspect]
     Active Substance: TOPIRAMATE
     Dosage: 0.5 MG/KG, QD
     Route: 048
  8. TOPIRAMATE [Suspect]
     Active Substance: TOPIRAMATE
     Dosage: 2 MG/KG, QW
     Route: 048
  9. TOPIRAMATE [Suspect]
     Active Substance: TOPIRAMATE
     Dosage: 8 MG/KG, QD
     Route: 048

REACTIONS (2)
  - Epilepsy [Unknown]
  - Condition aggravated [Unknown]
